FAERS Safety Report 8225441-6 (Version None)
Quarter: 2012Q1

REPORT INFORMATION
  Report Type: 
  Country: None (occurrence: None)
  Receive Date: 20120321
  Receipt Date: 20120314
  Transmission Date: 20120608
  Serious: Yes (Death)
  Sender: FDA-Public Use
  Company Number: US-ELI_LILLY_AND_COMPANY-US201203004167

PATIENT
  Sex: Male

DRUGS (3)
  1. REOPRO [Concomitant]
     Dosage: UNK, UNKNOWN
  2. PLAVIX [Concomitant]
     Dosage: UNK, UNKNOWN
  3. EFFIENT [Suspect]
     Dosage: 60 MG, SINGLE

REACTIONS (1)
  - ACUTE MYOCARDIAL INFARCTION [None]
